FAERS Safety Report 9342669 (Version 2)
Quarter: 2013Q3

REPORT INFORMATION
  Report Type: Report from Study
  Country: CA (occurrence: CA)
  Receive Date: 20130611
  Receipt Date: 20130813
  Transmission Date: 20140515
  Serious: Yes (Hospitalization, Disabling, Other)
  Sender: FDA-Public Use
  Company Number: CA-BAYER-2013-065924

PATIENT
  Age: 57 Year
  Sex: Male
  Weight: 67 kg

DRUGS (6)
  1. REGORAFENIB [Suspect]
     Indication: COLORECTAL CANCER METASTATIC
     Dosage: 160 MG, QD
     Dates: start: 20130522, end: 20130527
  2. TEGRETOL [Concomitant]
     Dosage: 200 MG BIP
  3. COVERSYL PLUS [Concomitant]
  4. DOMPERIDONE [Concomitant]
     Dosage: 10 MG Q 4-6H
     Route: 048
  5. CLINDAMYCIN [Concomitant]
  6. EMO CORT [Concomitant]

REACTIONS (7)
  - Dehydration [None]
  - Fatigue [None]
  - Hypokalaemia [None]
  - Vomiting [Recovered/Resolved]
  - Vomiting [None]
  - Weight decreased [None]
  - Rash [None]
